APPROVED DRUG PRODUCT: VASOCON-A
Active Ingredient: ANTAZOLINE PHOSPHATE; NAPHAZOLINE HYDROCHLORIDE
Strength: 0.5%;0.05%
Dosage Form/Route: SOLUTION/DROPS;OPHTHALMIC
Application: N018746 | Product #002
Applicant: NOVARTIS PHARMACEUTICALS CORP
Approved: Jul 11, 1994 | RLD: No | RS: No | Type: DISCN